FAERS Safety Report 7112455-2 (Version None)
Quarter: 2010Q4

REPORT INFORMATION
  Report Type: 
  Country: None (occurrence: None)
  Receive Date: 20101119
  Receipt Date: 20101116
  Transmission Date: 20110411
  Serious: Yes (Other)
  Sender: FDA-Public Use
  Company Number: GB-SANOFI-AVENTIS-2010SA069782

PATIENT
  Age: 61 Year
  Sex: Male
  Weight: 103.2 kg

DRUGS (8)
  1. AFLIBERCEPT [Suspect]
     Route: 042
     Dates: start: 20090820, end: 20090820
  2. AFLIBERCEPT [Suspect]
     Route: 042
     Dates: start: 20090917, end: 20090917
  3. OXALIPLATIN [Suspect]
     Route: 042
     Dates: start: 20090820, end: 20090820
  4. OXALIPLATIN [Suspect]
     Route: 042
     Dates: start: 20090917, end: 20090917
  5. FLUOROURACIL [Suspect]
     Route: 042
     Dates: start: 20090820, end: 20090820
  6. FLUOROURACIL [Suspect]
     Route: 042
     Dates: start: 20090917, end: 20090917
  7. LEUCOVORIN [Suspect]
     Route: 042
     Dates: start: 20090820, end: 20090820
  8. LEUCOVORIN [Suspect]
     Route: 042
     Dates: start: 20090917, end: 20090917

REACTIONS (1)
  - IMPAIRED HEALING [None]
